FAERS Safety Report 4775405-X (Version None)
Quarter: 2005Q3

REPORT INFORMATION
  Report Type: 
  Country: None (occurrence: None)
  Receive Date: 20050914
  Receipt Date: 20050314
  Transmission Date: 20060218
  Serious: Yes (Hospitalization)
  Sender: FDA-Public Use
  Company Number: 163-20785-05030334

PATIENT
  Age: 13 Year
  Sex: Male

DRUGS (7)
  1. THALOMID [Suspect]
     Indication: SYSTEMIC LUPUS ERYTHEMATOSUS
     Dosage: 100 MG, DAILY, ORAL
     Route: 048
     Dates: start: 20050201
  2. CYCLOPHOSPHAMIDE [Concomitant]
  3. ATENOLOL [Concomitant]
  4. VASOTEC [Concomitant]
  5. DIOVAN [Concomitant]
  6. PREDNISONE [Concomitant]
  7. ACETYLSALICYLIC ACID SRT [Concomitant]

REACTIONS (2)
  - CHEST PAIN [None]
  - HYPERTENSION [None]
